FAERS Safety Report 9900382 (Version 1)
Quarter: 2014Q1

REPORT INFORMATION
  Report Type: Spontaneous
  Country: US (occurrence: US)
  Receive Date: 20140216
  Receipt Date: 20140216
  Transmission Date: 20141002
  Serious: Yes (Hospitalization)
  Sender: FDA-Public Use
  Company Number: US-AMGEN-USASP2014009763

PATIENT
  Age: 54 Year
  Sex: Male

DRUGS (1)
  1. EPOGEN [Suspect]
     Indication: RENAL FAILURE CHRONIC
     Dosage: 5000 UNIT, Q2WK
     Route: 065

REACTIONS (9)
  - Pneumonia [Recovered/Resolved]
  - Empyema [Recovered/Resolved]
  - Haemoglobin decreased [Unknown]
  - Feeling abnormal [Recovered/Resolved]
  - Formication [Recovered/Resolved]
  - Blood pressure decreased [Recovered/Resolved]
  - Local swelling [Recovered/Resolved]
  - Neck pain [Recovered/Resolved]
  - Chest discomfort [Recovered/Resolved]
